FAERS Safety Report 6410817-X (Version None)
Quarter: 2009Q4

REPORT INFORMATION
  Report Type: 
  Country: None (occurrence: None)
  Receive Date: 20091022
  Receipt Date: 20091009
  Transmission Date: 20100525
  Serious: Yes (Other)
  Sender: FDA-Public Use
  Company Number: DE-CELGENEUS-062-21880-09082119

PATIENT
  Sex: Male
  Weight: 77 kg

DRUGS (10)
  1. REVLIMID [Suspect]
     Indication: PLASMACYTOMA
     Route: 048
  2. DEXAMETHASONE [Concomitant]
     Indication: PLASMACYTOMA
     Route: 065
  3. ALLOPURINOLE [Concomitant]
     Indication: DRUG USE FOR UNKNOWN INDICATION
     Route: 065
  4. COTRIM [Concomitant]
     Indication: DRUG USE FOR UNKNOWN INDICATION
     Route: 065
  5. JURNISTA [Concomitant]
     Indication: DRUG USE FOR UNKNOWN INDICATION
     Route: 065
  6. VALORON [Concomitant]
     Indication: DRUG USE FOR UNKNOWN INDICATION
     Dosage: 100/8 MG
     Route: 065
  7. NOVAMISULFON [Concomitant]
     Indication: DRUG USE FOR UNKNOWN INDICATION
     Route: 065
  8. NULYTELY [Concomitant]
     Indication: DRUG USE FOR UNKNOWN INDICATION
     Route: 065
  9. ZEFFIX [Concomitant]
     Indication: DRUG USE FOR UNKNOWN INDICATION
     Route: 065
  10. CYCLOCAPRON [Concomitant]
     Indication: DRUG USE FOR UNKNOWN INDICATION
     Route: 065

REACTIONS (2)
  - PARESIS [None]
  - PERIPHERAL SENSORIMOTOR NEUROPATHY [None]
